FAERS Safety Report 11964657 (Version 1)
Quarter: 2016Q1

REPORT INFORMATION
  Report Type: Spontaneous
  Country: US (occurrence: None)
  Receive Date: 20160125
  Receipt Date: 20160125
  Transmission Date: 20160526
  Serious: Yes (Hospitalization)
  Sender: FDA-Public Use
  Company Number: None

PATIENT
  Age: 60 Year
  Sex: Female
  Weight: 77.11 kg

DRUGS (1)
  1. NUCYNTA [Suspect]
     Active Substance: TAPENTADOL HYDROCHLORIDE
     Indication: BACK PAIN
     Dosage: 2 PILLS ONCE DAILY TAKEN BY MOUTH
     Dates: start: 20151211, end: 20151231

REACTIONS (9)
  - Impaired driving ability [None]
  - Blood pressure increased [None]
  - Tremor [None]
  - Feeling abnormal [None]
  - Drug interaction [None]
  - Restless legs syndrome [None]
  - Sleep disorder due to general medical condition, insomnia type [None]
  - Grip strength decreased [None]
  - Malaise [None]

NARRATIVE: CASE EVENT DATE: 20160101
